FAERS Safety Report 6416341-2 (Version None)
Quarter: 2009Q4

REPORT INFORMATION
  Report Type: 
  Country: None (occurrence: None)
  Receive Date: 20091027
  Receipt Date: 20091019
  Transmission Date: 20100525
  Serious: Yes (Hospitalization)
  Sender: FDA-Public Use
  Company Number: GR-ASTRAZENECA-2009SE20649

PATIENT
  Age: 35 Year
  Sex: Male

DRUGS (3)
  1. SEROQUEL [Suspect]
     Dosage: 2 OR 3 TABLETS
     Route: 048
  2. LEXOTANIL [Concomitant]
     Route: 048
  3. STILNOX [Concomitant]
     Indication: INSOMNIA
     Route: 048

REACTIONS (2)
  - ANTIDEPRESSANT DRUG LEVEL [None]
  - CONFUSIONAL STATE [None]
